FAERS Safety Report 8554908-6 (Version None)
Quarter: 2012Q3

REPORT INFORMATION
  Report Type: 
  Country: None (occurrence: None)
  Receive Date: 20120731
  Receipt Date: 20120724
  Transmission Date: 20120928
  Serious: No
  Sender: FDA-Public Use
  Company Number: US-ABBOTT-10P-163-0800320-00

PATIENT
  Age: 54 Year
  Sex: Female
  Weight: 109.09 kg

DRUGS (2)
  1. ANDROGEL [Suspect]
     Dosage: 35GM DAILY;16 PUMPS IN MORNING,12 PUMPS IN AFTERNOON, VIA PUMP
     Route: 062
  2. ANDROGEL [Suspect]
     Indication: ACCIDENTAL EXPOSURE
     Dosage: VIA PUMP
     Route: 062
     Dates: start: 20040101

REACTIONS (3)
  - ACCIDENTAL EXPOSURE [None]
  - BLOOD TESTOSTERONE INCREASED [None]
  - MENORRHAGIA [None]
